FAERS Safety Report 25900479 (Version 1)
Quarter: 2025Q4

REPORT INFORMATION
  Report Type: Spontaneous
  Country: US (occurrence: US)
  Receive Date: 20251009
  Receipt Date: 20251009
  Transmission Date: 20260118
  Serious: Yes (Hospitalization, Other)
  Sender: BAXTER
  Company Number: US-MLMSERVICE-20250924-PI656337-00175-1

PATIENT
  Age: 56 Year
  Sex: Male

DRUGS (5)
  1. HEPARIN SODIUM [Suspect]
     Active Substance: HEPARIN SODIUM
     Dosage: DURING THE CABG SURGERY
     Route: 065
  2. ENOXAPARIN [Suspect]
     Active Substance: ENOXAPARIN
     Indication: Thrombosis prophylaxis
     Route: 058
  3. CEFPODOXIME [Concomitant]
     Active Substance: CEFPODOXIME
     Indication: Antibiotic therapy
     Route: 065
  4. AZITHROMYCIN [Concomitant]
     Active Substance: AZITHROMYCIN
     Indication: Antibiotic therapy
     Dosage: UNK
     Route: 065
  5. SODIUM CHLORIDE [Concomitant]
     Active Substance: SODIUM CHLORIDE
     Indication: Medication dilution
     Dosage: UNK
     Route: 042

REACTIONS (28)
  - Diabetic ketoacidosis [Recovering/Resolving]
  - Heparin-induced thrombocytopenia [Recovering/Resolving]
  - Adrenal haemorrhage [Recovering/Resolving]
  - Adrenal insufficiency [Recovering/Resolving]
  - Blood glucose increased [Recovering/Resolving]
  - Blood creatinine increased [Recovering/Resolving]
  - Blood ketone body increased [Recovering/Resolving]
  - Anion gap increased [Recovered/Resolved]
  - Platelet count decreased [Recovering/Resolving]
  - Leukocytosis [Recovering/Resolving]
  - International normalised ratio increased [Recovering/Resolving]
  - Blood sodium decreased [Recovering/Resolving]
  - Pyrexia [Recovering/Resolving]
  - Mental status changes [Recovering/Resolving]
  - Dyspnoea [Recovering/Resolving]
  - Respiratory rate increased [Recovering/Resolving]
  - Nausea [Recovering/Resolving]
  - Vomiting [Recovering/Resolving]
  - Abdominal pain [Recovering/Resolving]
  - Diarrhoea [Recovering/Resolving]
  - Blood pressure fluctuation [Recovered/Resolved]
  - Mean arterial pressure decreased [Recovering/Resolving]
  - Adrenomegaly [Recovering/Resolving]
  - Cortisol decreased [Not Recovered/Not Resolved]
  - Blood corticotrophin increased [Not Recovered/Not Resolved]
  - Hypotension [Recovered/Resolved]
  - Blood aldosterone decreased [Recovered/Resolved]
  - Renin increased [Recovered/Resolved]
